FAERS Safety Report 21558085 (Version 2)
Quarter: 2022Q4

REPORT INFORMATION
  Report Type: Spontaneous
  Country: US (occurrence: US)
  Receive Date: 20221107
  Receipt Date: 20221209
  Transmission Date: 20230113
  Serious: No
  Sender: FDA-Public Use
  Company Number: US-drreddys-SPO/USA/22/0156041

PATIENT
  Age: 50 Year
  Sex: Male

DRUGS (2)
  1. ALBENDAZOLE [Suspect]
     Active Substance: ALBENDAZOLE
     Indication: Product used for unknown indication
     Dates: start: 20220921
  2. ALBENDAZOLE [Suspect]
     Active Substance: ALBENDAZOLE

REACTIONS (2)
  - Product taste abnormal [Unknown]
  - Drug ineffective [Unknown]
